FAERS Safety Report 25140974 (Version 1)
Quarter: 2025Q1

REPORT INFORMATION
  Report Type: Spontaneous
  Country: US (occurrence: None)
  Receive Date: 20250331
  Receipt Date: 20250331
  Transmission Date: 20250408
  Serious: No
  Sender: FDA-CTU
  Company Number: None

PATIENT

DRUGS (1)
  1. MYRBETRIQ [Suspect]
     Active Substance: MIRABEGRON

REACTIONS (6)
  - Sexual dysfunction [None]
  - Dysuria [None]
  - Flank pain [None]
  - Pollakiuria [None]
  - Stress [None]
  - Urinary incontinence [None]
